FAERS Safety Report 8786090 (Version 2)
Quarter: 2015Q1

REPORT INFORMATION
  Report Type: Report from Study
  Country: US (occurrence: US)
  Receive Date: 20120914
  Receipt Date: 20150316
  Transmission Date: 20150721
  Serious: Yes (Death, Other)
  Sender: FDA-Public Use
  Company Number: US-ROCHE-1114034

PATIENT
  Sex: Female

DRUGS (20)
  1. TARCEVA [Suspect]
     Active Substance: ERLOTINIB HYDROCHLORIDE
     Indication: PANCREATIC CARCINOMA
     Route: 065
  2. VANCOMYCIN [Concomitant]
     Active Substance: VANCOMYCIN
  3. GEMZAR [Concomitant]
     Active Substance: GEMCITABINE HYDROCHLORIDE
     Route: 065
  4. GEMCITABINE [Concomitant]
     Active Substance: GEMCITABINE\GEMCITABINE HYDROCHLORIDE
     Route: 065
  5. TOPROL XL [Concomitant]
     Active Substance: METOPROLOL SUCCINATE
  6. DARVOCET-N 100 [Concomitant]
     Active Substance: ACETAMINOPHEN\PROPOXYPHENE NAPSYLATE
  7. LEVAQUIN [Concomitant]
     Active Substance: LEVOFLOXACIN
     Route: 042
  8. ALOXI [Concomitant]
     Active Substance: PALONOSETRON HYDROCHLORIDE
  9. DEXAMETHASONE. [Concomitant]
     Active Substance: DEXAMETHASONE
  10. AVASTIN [Suspect]
     Active Substance: BEVACIZUMAB
     Indication: PANCREATIC CARCINOMA
     Route: 042
     Dates: start: 20060501
  11. NEULASTA [Concomitant]
     Active Substance: PEGFILGRASTIM
     Indication: PROPHYLAXIS
     Route: 065
  12. 5-FLUOROURACIL [Concomitant]
     Active Substance: FLUOROURACIL
     Route: 065
  13. KYTRIL [Concomitant]
     Active Substance: GRANISETRON HYDROCHLORIDE
     Route: 065
  14. IMODIUM [Concomitant]
     Active Substance: LOPERAMIDE HYDROCHLORIDE
  15. ARANESP [Concomitant]
     Active Substance: DARBEPOETIN ALFA
     Route: 065
  16. HYDROCHLOROTHIAZIDE. [Concomitant]
     Active Substance: HYDROCHLOROTHIAZIDE
  17. LISINOPRIL. [Concomitant]
     Active Substance: LISINOPRIL
  18. XELODA [Suspect]
     Active Substance: CAPECITABINE
     Indication: PRODUCT USED FOR UNKNOWN INDICATION
     Route: 065
  19. OXALIPLATIN. [Concomitant]
     Active Substance: OXALIPLATIN
     Route: 065
  20. LEUCOVORIN [Concomitant]
     Active Substance: LEUCOVORIN
     Route: 065

REACTIONS (24)
  - Hypertension [Unknown]
  - Disease progression [Unknown]
  - Device related infection [Unknown]
  - Dysphonia [Unknown]
  - Chills [Unknown]
  - Neutropenia [Unknown]
  - Off label use [Unknown]
  - Death [Fatal]
  - Presyncope [Unknown]
  - Fall [Unknown]
  - Abdominal pain [Unknown]
  - Pyrexia [Unknown]
  - Gait disturbance [Unknown]
  - Constipation [Unknown]
  - Asthenia [Unknown]
  - Diarrhoea [Unknown]
  - Eye disorder [Unknown]
  - Decreased appetite [Unknown]
  - Abdominal pain upper [Unknown]
  - Chest discomfort [Unknown]
  - Neuropathy peripheral [Unknown]
  - Weight decreased [Unknown]
  - Anaemia [Unknown]
  - Feeling abnormal [Unknown]
